FAERS Safety Report 5659046-8 (Version None)
Quarter: 2008Q1

REPORT INFORMATION
  Report Type: 
  Country: None (occurrence: None)
  Receive Date: 20080310
  Receipt Date: 20070606
  Transmission Date: 20080703
  Serious: Yes (Other)
  Sender: FDA-Public Use
  Company Number: US-BAYER-200711807BCC

PATIENT
  Sex: Female

DRUGS (3)
  1. ALEVE [Suspect]
     Indication: PAIN
     Dosage: UNIT DOSE: 220 MG
     Route: 048
  2. ADVIL [Suspect]
     Indication: DRUG USE FOR UNKNOWN INDICATION
     Route: 048
  3. ALBUTEROL [Concomitant]
     Route: 048

REACTIONS (2)
  - ABDOMINAL PAIN UPPER [None]
  - ULCER [None]
